FAERS Safety Report 12241448 (Version 2)
Quarter: 2016Q2

REPORT INFORMATION
  Report Type: Spontaneous
  Country: US (occurrence: US)
  Receive Date: 20160406
  Receipt Date: 20160506
  Transmission Date: 20160815
  Serious: No
  Sender: FDA-Public Use
  Company Number: US-PFIZER INC-2016155501

PATIENT
  Age: 72 Year
  Sex: Female

DRUGS (2)
  1. GABAPENTIN. [Suspect]
     Active Substance: GABAPENTIN
     Indication: NEUROPATHY PERIPHERAL
  2. GABAPENTIN. [Suspect]
     Active Substance: GABAPENTIN
     Indication: DIABETIC NEUROPATHY
     Dosage: 2-300 MG, 2X/DAY

REACTIONS (3)
  - Product use issue [Unknown]
  - Condition aggravated [Unknown]
  - Dizziness [Unknown]

NARRATIVE: CASE EVENT DATE: 20160320
